FAERS Safety Report 17883623 (Version 1)
Quarter: 2020Q2

REPORT INFORMATION
  Report Type: Spontaneous
  Country: US (occurrence: US)
  Receive Date: 20200610
  Receipt Date: 20200610
  Transmission Date: 20200714
  Serious: No
  Sender: FDA-Public Use
  Company Number: None

PATIENT
  Age: 70 Year
  Sex: Male

DRUGS (1)
  1. DALFAMPRIDINE ER 10MG AUROBINDO PHARMA [Suspect]
     Active Substance: DALFAMPRIDINE
     Indication: MULTIPLE SCLEROSIS
     Route: 048
     Dates: start: 202002, end: 202006

REACTIONS (4)
  - Drug ineffective [None]
  - Product substitution issue [None]
  - Musculoskeletal stiffness [None]
  - Peripheral swelling [None]

NARRATIVE: CASE EVENT DATE: 202002
